FAERS Safety Report 4550765-3 (Version None)
Quarter: 2004Q4

REPORT INFORMATION
  Report Type: 
  Country: None (occurrence: None)
  Receive Date: 20041217
  Receipt Date: 20040915
  Transmission Date: 20050328
  Serious: No
  Sender: FDA-Public Use
  Company Number: 2004-BP-08320BP

PATIENT
  Age: 44 Year
  Sex: Female

DRUGS (2)
  1. SPIRIVA [Suspect]
     Indication: BRONCHITIS
     Dosage: 18 MCG (18 MCG), IH
     Route: 055
     Dates: start: 20040915
  2. SINGULAIR (MONTELUKAST) [Concomitant]

REACTIONS (2)
  - DYSPNOEA [None]
  - WHEEZING [None]
